FAERS Safety Report 10285379 (Version 2)
Quarter: 2014Q3

REPORT INFORMATION
  Report Type: Report from Study
  Country: BR (occurrence: BR)
  Receive Date: 20140708
  Receipt Date: 20140708
  Transmission Date: 20150326
  Serious: Yes (Hospitalization, Disabling, Other)
  Sender: FDA-Public Use
  Company Number: PHHY2014BR048548

PATIENT
  Sex: Male

DRUGS (18)
  1. DIOVAN [Suspect]
     Active Substance: VALSARTAN
     Dosage: 640 MG, DAILY
  2. FENITOINA//PHENYTOIN [Suspect]
     Active Substance: PHENYTOIN
     Indication: BRAIN OPERATION
     Dosage: 300 MG, DAILY
     Dates: start: 201312
  3. METFORMIN [Suspect]
     Active Substance: METFORMIN HYDROCHLORIDE
     Indication: DIABETES MELLITUS
     Dosage: 2550 MG, DAILY
  4. METFORMIN [Suspect]
     Active Substance: METFORMIN HYDROCHLORIDE
     Dosage: 500 MG, UNK
  5. OMEPRAZOLE. [Concomitant]
     Active Substance: OMEPRAZOLE
     Dosage: UNK UKN (40 MG), UNK (WHEN FELT PAIN IN STOMACH)
  6. DIOVAN [Suspect]
     Active Substance: VALSARTAN
     Indication: CARDIAC DISORDER
     Dosage: 320 MG, DAILY
  7. APRESOLIN [Suspect]
     Active Substance: HYDRALAZINE HYDROCHLORIDE
     Indication: CARDIAC DISORDER
     Dosage: 3 DF, DAILY
  8. APRESOLIN [Suspect]
     Active Substance: HYDRALAZINE HYDROCHLORIDE
     Indication: ANTICOAGULANT THERAPY
     Dosage: 2 DF (50 MG), DAILY
  9. ALPRAZOLAM. [Suspect]
     Active Substance: ALPRAZOLAM
     Indication: SLEEP DISORDER
     Dosage: 1 DF (2 MG), DAILY
  10. NATRILIX [Suspect]
     Active Substance: INDAPAMIDE
     Indication: BLOOD PRESSURE ABNORMAL
     Dosage: 1 DF (1.5 MG), QD (IN THE MORNING)
  11. SPIRONOLACTONE. [Suspect]
     Active Substance: SPIRONOLACTONE
     Indication: CARDIAC DISORDER
     Dosage: 1 DF (25 MG), QD (IN THE MORNING)
  12. SIMVASTATIN. [Suspect]
     Active Substance: SIMVASTATIN
     Dosage: UNK UKN (20 MG), UNK
  13. GALVUS MET [Suspect]
     Active Substance: METFORMIN HYDROCHLORIDE\VILDAGLIPTIN
     Dosage: 1 DF, (850/50 MG) DAILY
  14. ZANIDIP [Suspect]
     Active Substance: LERCANIDIPINE HYDROCHLORIDE
     Indication: CARDIAC DISORDER
     Dosage: 1 DF (20 MG), QD (AT NIGHT)
  15. SIMVASTATIN. [Suspect]
     Active Substance: SIMVASTATIN
     Dosage: 1 DF (40 MG), DAILY
  16. OMEPRAZOLE. [Concomitant]
     Active Substance: OMEPRAZOLE
     Indication: ABDOMINAL PAIN UPPER
     Dosage: 1 DF (20 MG), DAILY
  17. GALVUS MET [Suspect]
     Active Substance: METFORMIN HYDROCHLORIDE\VILDAGLIPTIN
     Indication: DIABETES MELLITUS
     Dosage: 2 DF (850/50MG), DAILY
  18. AMIODARONE [Suspect]
     Active Substance: AMIODARONE
     Indication: BLOOD PRESSURE ABNORMAL
     Dosage: 1 DF (200 MG), QOD

REACTIONS (16)
  - Hypothalamo-pituitary disorder [Recovering/Resolving]
  - Speech disorder [Recovering/Resolving]
  - Eye discharge [Recovering/Resolving]
  - Paraesthesia [Recovering/Resolving]
  - Confusional state [Recovering/Resolving]
  - Cerebral thrombosis [Recovering/Resolving]
  - Rhinitis allergic [Unknown]
  - Hypersensitivity [Recovering/Resolving]
  - Tinnitus [Recovering/Resolving]
  - Visual impairment [Unknown]
  - Head discomfort [Unknown]
  - Blood glucose increased [Unknown]
  - Memory impairment [Unknown]
  - Paralysis [Recovering/Resolving]
  - Hearing impaired [Unknown]
  - Drug hypersensitivity [Recovering/Resolving]
